FAERS Safety Report 22044617 (Version 2)
Quarter: 2023Q1

REPORT INFORMATION
  Report Type: Spontaneous
  Country: FR (occurrence: FR)
  Receive Date: 20230228
  Receipt Date: 20230307
  Transmission Date: 20230417
  Serious: Yes (Life-Threatening, Hospitalization)
  Sender: FDA-Public Use
  Company Number: FR-AMGEN-FRASP2023033559

PATIENT
  Age: 62 Year
  Sex: Male
  Weight: 89 kg

DRUGS (44)
  1. BEVACIZUMAB [Suspect]
     Active Substance: BEVACIZUMAB
     Indication: Product used for unknown indication
     Dosage: 118 MILLIGRAM
     Route: 065
     Dates: start: 20220728, end: 20220728
  2. BEVACIZUMAB [Suspect]
     Active Substance: BEVACIZUMAB
     Dosage: 437 MILLIGRAM
     Route: 065
     Dates: start: 20220825, end: 20220825
  3. BEVACIZUMAB [Suspect]
     Active Substance: BEVACIZUMAB
     Dosage: 450 MILLIGRAM
     Route: 065
     Dates: start: 20220629
  4. BEVACIZUMAB [Suspect]
     Active Substance: BEVACIZUMAB
     Dosage: 475 MILLIGRAM
     Route: 065
     Dates: start: 20220614, end: 20220614
  5. BEVACIZUMAB [Suspect]
     Active Substance: BEVACIZUMAB
     Dosage: 425 MILLIGRAM
     Route: 065
     Dates: start: 20220811, end: 20220811
  6. BEVACIZUMAB [Suspect]
     Active Substance: BEVACIZUMAB
     Dosage: 398    MILLIGRAM
     Route: 065
     Dates: start: 20220922, end: 20220922
  7. BEVACIZUMAB [Suspect]
     Active Substance: BEVACIZUMAB
     Dosage: 425 MILLIGRAM
     Route: 065
     Dates: start: 20220908
  8. FLUOROURACIL [Suspect]
     Active Substance: FLUOROURACIL
     Indication: Colorectal cancer
     Dosage: 4800 MILLIGRAM
     Route: 040
     Dates: start: 20220629, end: 20220728
  9. FLUOROURACIL [Suspect]
     Active Substance: FLUOROURACIL
     Dosage: 4755 MILLIGRAM
     Route: 040
     Dates: start: 20220825, end: 20220825
  10. FLUOROURACIL [Suspect]
     Active Substance: FLUOROURACIL
     Dosage: 4800 MILLIGRAM
     Route: 040
     Dates: start: 20220614, end: 20220614
  11. FLUOROURACIL [Suspect]
     Active Substance: FLUOROURACIL
     Dosage: 3950 MILLIGRAM
     Route: 040
     Dates: start: 20220908, end: 20220908
  12. FLUOROURACIL [Suspect]
     Active Substance: FLUOROURACIL
     Dosage: 800 MILLIGRAM
     Route: 040
     Dates: start: 20220614, end: 20220908
  13. LEUCOVORIN [Suspect]
     Active Substance: LEUCOVORIN
     Indication: Colorectal cancer
     Dosage: 99 MILLIGRAM
     Route: 040
     Dates: start: 20220922, end: 20220922
  14. LEUCOVORIN [Suspect]
     Active Substance: LEUCOVORIN
     Dosage: 400 MILLIGRAM
     Route: 040
     Dates: start: 20220614, end: 20220712
  15. LEUCOVORIN [Suspect]
     Active Substance: LEUCOVORIN
     Dosage: 400 MILLIGRAM
     Route: 065
     Dates: start: 20220728
  16. LEUCOVORIN [Suspect]
     Active Substance: LEUCOVORIN
     Dosage: 400 MILLIGRAM
     Route: 040
     Dates: start: 20220811, end: 20220825
  17. LEUCOVORIN [Suspect]
     Active Substance: LEUCOVORIN
     Dosage: 99 MILLIGRAM
     Route: 040
     Dates: start: 20220908, end: 20220908
  18. LEUCOVORIN [Suspect]
     Active Substance: LEUCOVORIN
     Dosage: 400 MILLIGRAM
     Route: 040
     Dates: start: 20220825, end: 20220825
  19. OXALIPLATIN [Suspect]
     Active Substance: OXALIPLATIN
     Indication: Colorectal cancer
     Dosage: 165 MILLIGRAM
     Route: 040
     Dates: start: 20220825, end: 20220825
  20. OXALIPLATIN [Suspect]
     Active Substance: OXALIPLATIN
     Dosage: 165 MILLIGRAM
     Route: 040
     Dates: start: 20220614, end: 20220712
  21. OXALIPLATIN [Suspect]
     Active Substance: OXALIPLATIN
     Dosage: 165 MILLIGRAM
     Route: 065
     Dates: start: 20220629, end: 20220728
  22. OXALIPLATIN [Suspect]
     Active Substance: OXALIPLATIN
     Dosage: 165 MILLIGRAM
     Route: 040
     Dates: start: 20220811, end: 20220825
  23. OXALIPLATIN [Suspect]
     Active Substance: OXALIPLATIN
     Dosage: 82.5 MILLIGRAM
     Route: 040
     Dates: start: 20220908
  24. ZIMBERELIMAB [Suspect]
     Active Substance: ZIMBERELIMAB
     Indication: Colorectal cancer
     Dosage: 480 MILLIGRAM
     Route: 040
     Dates: start: 20220614
  25. ETRUMADENANT [Suspect]
     Active Substance: ETRUMADENANT
     Indication: Colorectal cancer
     Dosage: 150 MILLIGRAM
     Route: 065
     Dates: start: 20220910, end: 20221005
  26. ETRUMADENANT [Suspect]
     Active Substance: ETRUMADENANT
     Dosage: 150 MILLIGRAM
     Route: 048
     Dates: start: 20220616, end: 20220711
  27. ETRUMADENANT [Suspect]
     Active Substance: ETRUMADENANT
     Dosage: 150 MILLIGRAM
     Route: 065
     Dates: start: 20220714, end: 20220811
  28. ETRUMADENANT [Suspect]
     Active Substance: ETRUMADENANT
     Dosage: 150 MILLIGRAM
     Route: 048
     Dates: start: 20220615, end: 20220624
  29. ETRUMADENANT [Suspect]
     Active Substance: ETRUMADENANT
     Dosage: 150 MILLIGRAM
     Route: 048
     Dates: start: 20220811, end: 20220824
  30. METOCLOPRAMIDE [Concomitant]
     Active Substance: METOCLOPRAMIDE
     Dosage: UNK
     Dates: start: 20220614
  31. LOPERAMIDE [Concomitant]
     Active Substance: LOPERAMIDE
     Dosage: UNK
     Dates: start: 20220613
  32. SODIUM BICARBONATE [Concomitant]
     Active Substance: SODIUM BICARBONATE
  33. MONTMORILLONITE [Concomitant]
     Active Substance: MONTMORILLONITE
     Dosage: UNK
     Dates: start: 20220613
  34. APREPITANT [Concomitant]
     Active Substance: APREPITANT
     Dosage: UNK
     Dates: start: 20220613
  35. ACETAMINOPHEN [Concomitant]
     Active Substance: ACETAMINOPHEN
     Dosage: UNK
     Dates: start: 20200701
  36. POLYETHYLENE GLYCOLS [Concomitant]
     Active Substance: POLYETHYLENE GLYCOLS
     Dosage: UNK
     Dates: start: 20220301
  37. TRAMADOL [Concomitant]
     Active Substance: TRAMADOL
     Dosage: UNK
     Dates: start: 20220615
  38. ONDANSETRON [Concomitant]
     Active Substance: ONDANSETRON
     Dosage: UNK
     Dates: start: 20220614
  39. LIDOCAINE [Concomitant]
     Active Substance: LIDOCAINE
     Dosage: UNK
     Dates: start: 20220811
  40. Donormyl [Concomitant]
     Dosage: UNK
     Dates: start: 20210701
  41. RACECADOTRIL [Concomitant]
     Active Substance: RACECADOTRIL
     Dosage: UNK
     Dates: start: 20220613
  42. PREDNISOLONE [Concomitant]
     Active Substance: PREDNISOLONE
     Dosage: UNK
     Dates: start: 20220811
  43. ESOMEPRAZOLE [Concomitant]
     Active Substance: ESOMEPRAZOLE
     Dates: start: 20220719
  44. LANSOPRAZOLE [Concomitant]
     Active Substance: LANSOPRAZOLE
     Dosage: UNK
     Dates: start: 20220728

REACTIONS (1)
  - Hypersensitivity [Recovered/Resolved]
